FAERS Safety Report 21428813 (Version 8)
Quarter: 2024Q1

REPORT INFORMATION
  Report Type: Other
  Country: PL (occurrence: None)
  Receive Date: 20221009
  Receipt Date: 20240314
  Transmission Date: 20240410
  Serious: Yes (Other)
  Sender: FDA-Public Use
  Company Number: PL-ROCHE-3194136

PATIENT
  Age: 64 Year
  Sex: Female
  Weight: 64.5 kg

DRUGS (22)
  1. ATEZOLIZUMAB [Suspect]
     Active Substance: ATEZOLIZUMAB
     Indication: Small cell lung cancer metastatic
     Dosage: ON 23/MAR/2022, SHE RECEIVED THE MOST RECENT DOSE OF ATEZOLIZUMAB PRIOR TO AE
     Route: 041
     Dates: start: 20220119
  2. CARBOPLATIN [Suspect]
     Active Substance: CARBOPLATIN
     Indication: Small cell lung cancer metastatic
     Route: 065
     Dates: start: 20220209
  3. ETOPOSIDE [Suspect]
     Active Substance: ETOPOSIDE
     Indication: Small cell lung cancer metastatic
     Route: 042
     Dates: start: 20220209
  4. ESOMEPRAZOLE MAGNESIUM [Concomitant]
     Active Substance: ESOMEPRAZOLE\ESOMEPRAZOLE MAGNESIUM\ESOMEPRAZOLE MAGNESIUM DIHYDRATE
     Dates: start: 20220324, end: 20220324
  5. TEMAZEPAM [Concomitant]
     Active Substance: TEMAZEPAM
  6. ENOXAPARIN [Concomitant]
     Active Substance: ENOXAPARIN
     Dates: start: 20220119
  7. ACIPREX (POLAND) [Concomitant]
     Dates: start: 20220212
  8. SODIUM CHLORIDE [Concomitant]
     Active Substance: SODIUM CHLORIDE
     Dates: start: 20220323, end: 20220325
  9. SODIUM CHLORIDE [Concomitant]
     Active Substance: SODIUM CHLORIDE
     Dates: start: 20220413, end: 20220415
  10. ONDANSETRON [Concomitant]
     Active Substance: ONDANSETRON
     Dates: start: 20220323, end: 20220325
  11. ONDANSETRON [Concomitant]
     Active Substance: ONDANSETRON
     Dates: start: 20220413, end: 20220415
  12. ONDANSETRON [Concomitant]
     Active Substance: ONDANSETRON
     Dates: start: 20220301, end: 20220303
  13. CALCIUM CHLORIDE\MAGNESIUM CHLORIDE\POTASSIUM CHLORIDE\SODIUM ACETATE\ [Concomitant]
     Active Substance: CALCIUM CHLORIDE\MAGNESIUM CHLORIDE\POTASSIUM CHLORIDE\SODIUM ACETATE\SODIUM CHLORIDE\SODIUM CITRATE
     Dates: start: 20220323, end: 20220325
  14. CALCIUM CHLORIDE\MAGNESIUM CHLORIDE\POTASSIUM CHLORIDE\SODIUM ACETATE\ [Concomitant]
     Active Substance: CALCIUM CHLORIDE\MAGNESIUM CHLORIDE\POTASSIUM CHLORIDE\SODIUM ACETATE\SODIUM CHLORIDE\SODIUM CITRATE
     Dates: start: 20220413, end: 20220415
  15. CALCIUM CHLORIDE\MAGNESIUM CHLORIDE\POTASSIUM CHLORIDE\SODIUM ACETATE\ [Concomitant]
     Active Substance: CALCIUM CHLORIDE\MAGNESIUM CHLORIDE\POTASSIUM CHLORIDE\SODIUM ACETATE\SODIUM CHLORIDE\SODIUM CITRATE
     Dates: start: 20220301, end: 20220303
  16. OMEPRAZOLE [Concomitant]
     Active Substance: OMEPRAZOLE
     Dates: start: 20220323, end: 20220325
  17. OMEPRAZOLE [Concomitant]
     Active Substance: OMEPRAZOLE
     Dates: start: 20220413, end: 20220415
  18. ACETAMINOPHEN [Concomitant]
     Active Substance: ACETAMINOPHEN
     Dates: start: 20220323, end: 20220323
  19. CLEMASTINE FUMARATE [Concomitant]
     Active Substance: CLEMASTINE FUMARATE
     Dates: start: 20220413, end: 20220413
  20. METAMIZOL [Concomitant]
     Active Substance: METAMIZOLE SODIUM
     Dates: start: 20220324, end: 20220324
  21. FILGRASTIM [Concomitant]
     Active Substance: FILGRASTIM
     Dosage: SUBSEQUENT DOSE DATES: 04-MAR-2022/08-MAR-2022 , 26-MAR-2022/30-MAR-2022?16-APR-2022/20-APR-2022
     Dates: start: 20220212, end: 20220216
  22. FILGRASTIM [Concomitant]
     Active Substance: FILGRASTIM
     Dosage: SUBSEQUENT DOSE DATES: 04-MAR-2022/08-MAR-2022 , 26-MAR-2022/30-MAR-2022?16-APR-2022/20-APR-2022
     Dates: start: 20220304, end: 20220308

REACTIONS (4)
  - Panniculitis [Recovered/Resolved]
  - Pneumonitis [Recovered/Resolved]
  - Gastrointestinal pain [Recovered/Resolved]
  - Headache [Recovered/Resolved]

NARRATIVE: CASE EVENT DATE: 20220306
